FAERS Safety Report 7323270-9 (Version None)
Quarter: 2011Q1

REPORT INFORMATION
  Report Type: 
  Country: None (occurrence: None)
  Receive Date: 20110301
  Receipt Date: 20110217
  Transmission Date: 20110831
  Serious: Yes (Death)
  Sender: FDA-Public Use
  Company Number: JP-JNJFOC-20101202535

PATIENT
  Sex: Female
  Weight: 69 kg

DRUGS (8)
  1. DOXIL [Suspect]
     Dosage: CYCLE 2
     Route: 042
  2. DOXIL [Suspect]
     Dosage: CYCLE 3
     Route: 042
  3. MUCOSTA [Concomitant]
     Route: 048
  4. DOXIL [Suspect]
     Dosage: CYCLE 4
     Route: 042
  5. LOXONIN [Concomitant]
     Indication: OVARIAN CANCER RECURRENT
     Route: 048
  6. DOXIL [Suspect]
     Dosage: CYCLE 5
     Route: 042
  7. DOXIL [Suspect]
     Indication: OVARIAN CANCER RECURRENT
     Dosage: CYCLE 1
     Route: 042
  8. MUCOSTA [Concomitant]
     Indication: PROPHYLAXIS
     Route: 048

REACTIONS (1)
  - DEATH [None]
